FAERS Safety Report 4944783-0 (Version None)
Quarter: 2006Q1

REPORT INFORMATION
  Report Type: 
  Country: None (occurrence: None)
  Receive Date: 20060118
  Receipt Date: 20050726
  Transmission Date: 20060701
  Serious: Yes (Other)
  Sender: FDA-Public Use
  Company Number: US-JNJFOC-20050607593

PATIENT
  Age: 53 Year
  Sex: Female
  Weight: 69 kg

DRUGS (4)
  1. DOXIL [Suspect]
     Indication: BREAST CANCER
     Dosage: 62 MG; 52 MG : 1 IN 4 WEEK, INTRAVENOUS
     Route: 042
     Dates: start: 20050201, end: 20050401
  2. DOXIL [Suspect]
     Indication: BREAST CANCER
     Dosage: 62 MG; 52 MG : 1 IN 4 WEEK, INTRAVENOUS
     Route: 042
     Dates: start: 20050505, end: 20050602
  3. ZOMETA [Concomitant]
  4. FASLODEX [Concomitant]

REACTIONS (4)
  - BLOOD ALKALINE PHOSPHATASE INCREASED [None]
  - BLOOD BILIRUBIN INCREASED [None]
  - DERMATITIS [None]
  - TRANSAMINASES INCREASED [None]
